FAERS Safety Report 9066817 (Version 1)
Quarter: 2013Q1

REPORT INFORMATION
  Report Type: Spontaneous
  Country: GB (occurrence: GB)
  Receive Date: 20130214
  Receipt Date: 20130214
  Transmission Date: 20140127
  Serious: Yes (Hospitalization)
  Sender: FDA-Public Use
  Company Number: GB-GLAXOSMITHKLINE-B0865953A

PATIENT
  Age: 65 Year
  Sex: Male

DRUGS (3)
  1. VOTRIENT [Suspect]
     Indication: RENAL CELL CARCINOMA
     Dosage: 800MG PER DAY
     Route: 065
     Dates: start: 201212
  2. LOPERAMIDE [Concomitant]
  3. SUNITINIB [Concomitant]

REACTIONS (2)
  - Diarrhoea [Unknown]
  - Dehydration [Unknown]
